FAERS Safety Report 7202612-9 (Version None)
Quarter: 2010Q4

REPORT INFORMATION
  Report Type: 
  Country: None (occurrence: None)
  Receive Date: 20101209
  Receipt Date: 20101001
  Transmission Date: 20110411
  Serious: Yes (Other)
  Sender: FDA-Public Use
  Company Number: OMX-2010-00144

PATIENT

DRUGS (3)
  1. EVICEL [Suspect]
     Indication: TISSUE SEALING
     Dates: start: 20100901, end: 20100901
  2. EVICEL [Suspect]
     Indication: TISSUE SEALING
     Dates: start: 20101001, end: 20101001
  3. APPLICATOR [Concomitant]

REACTIONS (3)
  - EYE OPERATION COMPLICATION [None]
  - GRAFT COMPLICATION [None]
  - OFF LABEL USE [None]
